FAERS Safety Report 24738406 (Version 1)
Quarter: 2024Q4

REPORT INFORMATION
  Report Type: Spontaneous
  Country: CN (occurrence: CN)
  Receive Date: 20241216
  Receipt Date: 20241216
  Transmission Date: 20250115
  Serious: Yes (Hospitalization, Disabling, Other)
  Sender: PFIZER
  Company Number: CN-PFIZER INC-PV202400161514

PATIENT
  Age: 59 Year
  Sex: Male
  Weight: 70 kg

DRUGS (4)
  1. METHOTREXATE SODIUM [Suspect]
     Active Substance: METHOTREXATE SODIUM
     Indication: Lymphoma
     Dosage: 5.4 G, 1X/DAY
     Route: 041
     Dates: start: 20241204, end: 20241204
  2. OXALIPLATIN [Concomitant]
     Active Substance: OXALIPLATIN
     Indication: Lymphoma
     Dosage: 180 MG, 1X/DAY
     Route: 041
     Dates: start: 20241204, end: 20241204
  3. TISLELIZUMAB [Concomitant]
     Active Substance: TISLELIZUMAB
     Indication: Lymphoma
     Dosage: 100 MG, 1X/DAY
     Route: 041
     Dates: start: 20241204, end: 20241204
  4. GEMCITABINE HYDROCHLORIDE [Concomitant]
     Active Substance: GEMCITABINE HYDROCHLORIDE
     Indication: Lymphoma
     Dosage: 1.8 G, 1X/DAY
     Route: 041
     Dates: start: 20241204, end: 20241204

REACTIONS (2)
  - Drug level increased [Not Recovered/Not Resolved]
  - Renal impairment [Not Recovered/Not Resolved]

NARRATIVE: CASE EVENT DATE: 20241205
